FAERS Safety Report 5530496-3 (Version None)
Quarter: 2007Q4

REPORT INFORMATION
  Report Type: 
  Country: None (occurrence: None)
  Receive Date: 20071127
  Receipt Date: 20071127
  Transmission Date: 20080405
  Serious: No
  Sender: FDA-Public Use
  Company Number: None

PATIENT
  Age: 70 Year
  Sex: Male

DRUGS (1)
  1. VARENICLINE [Suspect]
     Dosage: 0.5MG EVERY DAY PO
     Route: 048
     Dates: start: 20070904, end: 20070925

REACTIONS (1)
  - INSOMNIA [None]
